FAERS Safety Report 10431454 (Version 1)
Quarter: 2014Q3

REPORT INFORMATION
  Report Type: Spontaneous
  Country: IT (occurrence: IT)
  Receive Date: 20140904
  Receipt Date: 20140904
  Transmission Date: 20150326
  Serious: Yes (Congenital Anomaly)
  Sender: FDA-Public Use
  Company Number: IT-GLAXOSMITHKLINE-B1029787B

PATIENT
  Sex: Female

DRUGS (1)
  1. ACYCLOVIR. [Suspect]
     Active Substance: ACYCLOVIR
     Indication: HERPES SIMPLEX
     Dosage: 400MG TWICE PER DAY
     Route: 064

REACTIONS (8)
  - Foetal exposure during pregnancy [Unknown]
  - Scab [Unknown]
  - Rash [Unknown]
  - Brain malformation [Unknown]
  - Thrombocytopenia [Unknown]
  - Skin lesion [Unknown]
  - Herpes simplex [Unknown]
  - Skin haemorrhage [Unknown]
